FAERS Safety Report 12183933 (Version 4)
Quarter: 2018Q2

REPORT INFORMATION
  Report Type: Report from Study
  Country: IT (occurrence: IT)
  Receive Date: 20160316
  Receipt Date: 20180619
  Transmission Date: 20180711
  Serious: Yes (Death, Life-Threatening, Other)
  Sender: FDA-Public Use
  Company Number: IT-ASTELLAS-2015US033160

PATIENT
  Age: 1 Month
  Sex: Male
  Weight: 1 kg

DRUGS (27)
  1. OMEPRAZOLO [Concomitant]
     Active Substance: OMEPRAZOLE
     Indication: ANTACID THERAPY
     Route: 042
     Dates: start: 20150817, end: 20150912
  2. OMEPRAZOLO [Concomitant]
     Active Substance: OMEPRAZOLE
     Indication: GASTRITIS PROPHYLAXIS
  3. VITAMINA K                         /00032401/ [Concomitant]
     Indication: PROPHYLAXIS
     Dosage: 0.5 MG, ONCE DAILY
     Route: 042
     Dates: start: 20150722, end: 20150912
  4. COLIMICINA                         /00013203/ [Concomitant]
     Active Substance: COLISTIN SULFATE
     Indication: ANTIBIOTIC THERAPY
     Route: 042
     Dates: start: 20150825, end: 20150912
  5. ETHACRYNIC ACID. [Concomitant]
     Active Substance: ETHACRYNIC ACID
     Indication: OLIGURIA
     Dosage: 6 MG,  (24 HOUR INFUSION)
     Route: 042
     Dates: start: 20150910, end: 20150912
  6. DOPAMINA [Concomitant]
     Indication: HYPOTENSION
  7. ULTIVA [Concomitant]
     Active Substance: REMIFENTANIL HYDROCHLORIDE
     Indication: SEDATION
     Dosage: 0.3 MG, (24 HOUR INFUSION)
     Route: 042
     Dates: start: 20150719, end: 20150912
  8. MICAFUNGIN [Suspect]
     Active Substance: MICAFUNGIN
     Route: 042
     Dates: start: 20150911, end: 20150911
  9. MILRINONE [Concomitant]
     Active Substance: MILRINONE
     Indication: CARDIAC FAILURE
     Dosage: 0.2 MG, (24 HOUR INFUSION)
     Route: 042
     Dates: start: 20150909, end: 20150912
  10. VASOPRESSINA [Concomitant]
     Indication: HYPOTENSION
     Dosage: 0.6 IU, (24 HOUR INFUSION)
     Route: 042
     Dates: start: 20150909, end: 20150911
  11. COLIMICINA                         /00013203/ [Concomitant]
     Active Substance: COLISTIN SULFATE
     Indication: SEPSIS
  12. BETAMETASONE [Concomitant]
     Active Substance: BETAMETHASONE
     Indication: LUNG DISORDER
     Dosage: 0.25 MG, ONCE DAILY
     Route: 042
     Dates: start: 20150907, end: 20150912
  13. MIDAZOLAM [Concomitant]
     Active Substance: MIDAZOLAM HYDROCHLORIDE
     Indication: SEDATION
     Dosage: 1.8 MG, (24 HOUR INFUSION)
     Route: 042
     Dates: start: 20150729, end: 20150912
  14. NORADRENALIN                       /00127501/ [Concomitant]
     Active Substance: NOREPINEPHRINE\NOREPINEPHRINE BITARTRATE
     Indication: HYPOTENSION
     Dosage: 100 ?G, (24 HOUR INFUSION)
     Route: 042
     Dates: start: 20150911, end: 20150912
  15. BOSENTAN. [Concomitant]
     Active Substance: BOSENTAN
     Indication: PULMONARY HYPERTENSION
     Route: 042
     Dates: start: 20150909, end: 20150912
  16. CAFFEINE                           /00060502/ [Concomitant]
     Active Substance: CAFFEINE CITRATE
     Indication: PREMATURE BABY
     Route: 042
     Dates: start: 20150811, end: 20150912
  17. MEROPENEM. [Concomitant]
     Active Substance: MEROPENEM
     Indication: SEPSIS
  18. MEROPENEM. [Concomitant]
     Active Substance: MEROPENEM
     Indication: INFECTION
     Route: 042
     Dates: start: 20150909, end: 20150912
  19. DOPAMINA [Concomitant]
     Indication: SHOCK
     Dosage: 20 MG, 24 HOUR INFUSION
     Route: 042
     Dates: start: 20150830, end: 20150912
  20. FUROSEMIDE. [Concomitant]
     Active Substance: FUROSEMIDE
     Indication: DIURETIC THERAPY
     Route: 042
     Dates: start: 20150812, end: 20150912
  21. MICAFUNGIN [Suspect]
     Active Substance: MICAFUNGIN
     Indication: FUNGAL INFECTION
     Route: 042
     Dates: start: 20150826, end: 20150904
  22. CEFTAZIDIMA [Concomitant]
     Active Substance: CEFTAZIDIME
     Indication: SEPSIS
     Route: 042
     Dates: start: 20150823, end: 20150827
  23. CEFTAZIDIMA [Concomitant]
     Active Substance: CEFTAZIDIME
     Route: 042
     Dates: start: 20150827, end: 20150912
  24. PENTAGLOBIN [Concomitant]
     Active Substance: HUMAN IMMUNOGLOBULIN G
     Indication: SEPSIS
     Route: 042
     Dates: start: 20150824, end: 20150912
  25. VITAMINA K                         /00032401/ [Concomitant]
     Indication: PREMATURE BABY
  26. SILDENAFIL. [Concomitant]
     Active Substance: SILDENAFIL
     Indication: PULMONARY HYPERTENSION
     Dosage: 1 MG, 6 TIMES DAILY
     Route: 048
     Dates: start: 20150828
  27. SILDENAFIL. [Concomitant]
     Active Substance: SILDENAFIL
     Dosage: 1 MG, 6 TIMES DAILY
     Route: 042
     Dates: start: 20150901, end: 20150912

REACTIONS (3)
  - Septic shock [Fatal]
  - Hypotension [Unknown]
  - Anuria [Recovered/Resolved]

NARRATIVE: CASE EVENT DATE: 20150830
